FAERS Safety Report 8134410-6 (Version None)
Quarter: 2012Q1

REPORT INFORMATION
  Report Type: 
  Country: None (occurrence: None)
  Receive Date: 20120209
  Receipt Date: 20120203
  Transmission Date: 20120608
  Serious: Yes (Other)
  Sender: FDA-Public Use
  Company Number: AUR-APL-2012-00828

PATIENT
  Age: 68 Year
  Sex: Female
  Weight: 90.7 kg

DRUGS (12)
  1. CELEBREX [Suspect]
     Indication: POLYARTHRITIS
     Dosage: 200 MG, 1 D
     Dates: start: 20111201
  2. PREDNISOLONE ACETATE [Suspect]
     Indication: EYE OEDEMA
     Dosage: OPHTHALMIC
     Route: 047
  3. LEVOXYL [Concomitant]
  4. CORTISONE ACETATE [Suspect]
     Indication: EYE OEDEMA
     Dosage: 4 IN 1 D
     Dates: start: 20110501
  5. TOBRAMYCIN SULFATE [Suspect]
     Indication: EYE OEDEMA
     Dosage: OPHTHALMIC
     Route: 047
  6. PRED FORTE [Suspect]
     Indication: EYE OEDEMA
     Dosage: OPHTHALMIC
     Route: 047
  7. SYSTANE (RHINARIS) [Suspect]
     Indication: EYE OEDEMA
     Dosage: OPHTHALMIC
     Route: 047
  8. ACETAZOLAMIDE [Suspect]
     Indication: EYE OEDEMA
     Dosage: 125 MG, 1 D
  9. KETOROLAC TROMETHAMINE [Suspect]
     Indication: EYE OEDEMA
     Dosage: OPHTHALMIC
     Route: 047
  10. SIMVASTATIN [Suspect]
     Indication: BLOOD CHOLESTEROL INCREASED
     Dates: end: 20111001
  11. LIPITOR [Suspect]
     Indication: BLOOD CHOLESTEROL INCREASED
     Dosage: 20 MG, 1 D, ORAL
     Route: 048
     Dates: end: 20111001
  12. NAPROXEN SODIUM [Suspect]
     Indication: POLYARTHRITIS
     Dates: end: 20111201

REACTIONS (5)
  - EYE OEDEMA [None]
  - ARTHRITIS [None]
  - VISION BLURRED [None]
  - CATARACT OPERATION [None]
  - INTRAOCULAR PRESSURE INCREASED [None]
